FAERS Safety Report 19886659 (Version 6)
Quarter: 2023Q1

REPORT INFORMATION
  Report Type: Spontaneous
  Country: US (occurrence: US)
  Receive Date: 20210927
  Receipt Date: 20230104
  Transmission Date: 20230418
  Serious: No
  Sender: FDA-Public Use
  Company Number: US-PFIZER INC-2021325371

PATIENT
  Age: 84 Year
  Sex: Female

DRUGS (2)
  1. IBRANCE [Suspect]
     Active Substance: PALBOCICLIB
     Dosage: 125 MG
     Dates: start: 20210306
  2. IBRANCE [Suspect]
     Active Substance: PALBOCICLIB
     Dosage: 100MG

REACTIONS (8)
  - Diarrhoea [Unknown]
  - Headache [Unknown]
  - Product dose omission issue [Unknown]
  - Off label use [Unknown]
  - White blood cell count decreased [Unknown]
  - Anaemia [Unknown]
  - Fatigue [Unknown]
  - Dry skin [Unknown]
